FAERS Safety Report 13342252 (Version 1)
Quarter: 2017Q1

REPORT INFORMATION
  Report Type: Report from Study
  Country: US (occurrence: US)
  Receive Date: 20170316
  Receipt Date: 20170316
  Transmission Date: 20170428
  Serious: Yes (Hospitalization)
  Sender: FDA-Public Use
  Company Number: US-ASTRAZENECA-2013SE65201

PATIENT
  Age: 72 Year
  Sex: Male
  Weight: 113.4 kg

DRUGS (23)
  1. GLIPIZIDE. [Concomitant]
     Active Substance: GLIPIZIDE
     Indication: HYPERGLYCAEMIA
     Dosage: 17.5 MG, BID
     Route: 048
     Dates: start: 201302
  2. METOPROLOL. [Concomitant]
     Active Substance: METOPROLOL
     Indication: HYPERTENSION
     Dosage: 200 MG, QD
     Route: 048
     Dates: start: 20110712
  3. CITALOPRAM HYDROBROMIDE. [Concomitant]
     Active Substance: CITALOPRAM HYDROBROMIDE
     Indication: ANXIETY
     Dosage: 20 MG, QD
     Route: 048
     Dates: start: 20110712
  4. OMEGA-3 ACIDS [Concomitant]
     Active Substance: OMEGA-3 FATTY ACIDS
     Indication: HYPERLIPIDAEMIA
     Dosage: 8000 MG, UNK
     Dates: start: 20111216
  5. BYDUREON [Suspect]
     Active Substance: EXENATIDE
     Indication: TYPE 2 DIABETES MELLITUS
     Route: 057
     Dates: start: 20120820
  6. POTASSIUM CHLORIDE. [Concomitant]
     Active Substance: POTASSIUM CHLORIDE
     Indication: MINERAL SUPPLEMENTATION
     Dosage: 20 MEQ, QD
     Dates: start: 20130215
  7. SALSALATE. [Concomitant]
     Active Substance: SALSALATE
     Indication: PAIN
     Dosage: 75 MG TID)
     Route: 048
     Dates: start: 20130218
  8. GEMFIBROZIL. [Concomitant]
     Active Substance: GEMFIBROZIL
     Indication: LIPIDS INCREASED
     Dosage: 1200 MG, QD
     Route: 048
     Dates: start: 20110808
  9. LISINOPRIL. [Concomitant]
     Active Substance: LISINOPRIL
     Indication: CORONARY ARTERY DISEASE
     Dosage: 40 MG, QD
     Route: 048
     Dates: start: 20121228
  10. OMEPRAZOLE. [Concomitant]
     Active Substance: OMEPRAZOLE
     Indication: GASTROOESOPHAGEAL REFLUX DISEASE
     Dosage: 40 MG, UNK
     Dates: start: 20130214
  11. SLO-NIACIN [Concomitant]
     Active Substance: DIETARY SUPPLEMENT
     Indication: HYPERLIPIDAEMIA
     Dosage: 2000 MG, QD
     Route: 048
     Dates: start: 20110804
  12. WARFARIN SODIUM. [Suspect]
     Active Substance: WARFARIN SODIUM
     Indication: CORONARY ARTERY DISEASE
     Dosage: 11.25 MG, UNK
     Dates: start: 20130111, end: 20130318
  13. FUROSEMIDE. [Concomitant]
     Active Substance: FUROSEMIDE
     Indication: CORONARY ARTERY DISEASE
     Dosage: 60 MG, QD
     Route: 048
     Dates: start: 20121228
  14. ISOSORBIDE. [Concomitant]
     Active Substance: ISOSORBIDE
     Indication: ANGINA PECTORIS
     Dosage: 120 MG, QD
     Route: 048
     Dates: start: 20130104
  15. AMLODIPINE [Concomitant]
     Active Substance: AMLODIPINE BESYLATE
     Indication: CORONARY ARTERY DISEASE
     Dosage: 10 MG, UNK
     Route: 048
     Dates: start: 20110712
  16. NITROSTAT [Concomitant]
     Active Substance: NITROGLYCERIN
     Indication: ANGINA PECTORIS
     Dosage: .4 MG, UNK
     Dates: start: 20110804
  17. ALBUTEROL. [Concomitant]
     Active Substance: ALBUTEROL
     Indication: CHRONIC OBSTRUCTIVE PULMONARY DISEASE
     Dosage: 90 MCG INHALE 2 PUFFS QID PRN90.0UG AS REQUIRED
     Dates: start: 20121129
  18. ASPIRIN. [Concomitant]
     Active Substance: ASPIRIN
     Indication: CORONARY ARTERY DISEASE
     Dosage: 81 MG, QD
     Route: 048
     Dates: start: 20121116
  19. NICOTINE. [Concomitant]
     Active Substance: NICOTINE
     Indication: TOBACCO USER
     Dosage: 21 MG, INTERMITTENT21.0MG INTERMITTENT
     Dates: start: 20121015
  20. CLOPIDOGREL SULFATE [Concomitant]
     Active Substance: CLOPIDOGREL BISULFATE
     Indication: CORONARY ARTERY DISEASE
     Dosage: 75 MG, QD
     Route: 048
     Dates: start: 20121116
  21. BUDESONIDE. [Concomitant]
     Active Substance: BUDESONIDE
     Indication: CHRONIC OBSTRUCTIVE PULMONARY DISEASE
     Dosage: 16014.5MCG INHALE 2 PUFFS
     Dates: start: 20121130
  22. PRAVASTATIN SODIUM. [Concomitant]
     Active Substance: PRAVASTATIN SODIUM
     Indication: HYPERCHOLESTEROLAEMIA
     Dosage: 80 MG, UNK
     Dates: start: 20130215
  23. WARFARIN SODIUM. [Suspect]
     Active Substance: WARFARIN SODIUM
     Indication: ATRIAL FIBRILLATION
     Dosage: 11.25 MG, UNK
     Dates: start: 20130111, end: 20130318

REACTIONS (1)
  - Gastrointestinal arteriovenous malformation [Recovered/Resolved]

NARRATIVE: CASE EVENT DATE: 20130318
